FAERS Safety Report 17156901 (Version 1)
Quarter: 2019Q4

REPORT INFORMATION
  Report Type: Spontaneous
  Country: SE (occurrence: SE)
  Receive Date: 20191216
  Receipt Date: 20191216
  Transmission Date: 20200122
  Serious: Yes (Hospitalization)
  Sender: FDA-Public Use
  Company Number: SE-TEVA-2019-SE-1151076

PATIENT
  Age: 91 Year
  Sex: Female

DRUGS (15)
  1. ALVEDON [Concomitant]
     Active Substance: ACETAMINOPHEN
  2. FURIX [Concomitant]
  3. IMPUGAN [Concomitant]
     Active Substance: FUROSEMIDE
  4. LACTULOSE. [Concomitant]
     Active Substance: LACTULOSE
  5. OXYCODONE [Concomitant]
     Active Substance: OXYCODONE
  6. CORDARONE 200 MG TABLETT [Suspect]
     Active Substance: AMIODARONE HYDROCHLORIDE
     Indication: ATRIAL FIBRILLATION
     Dosage: 200 MG 1 X 1
     Route: 048
     Dates: start: 20180926, end: 20190614
  7. ELIQUIS [Concomitant]
     Active Substance: APIXABAN
  8. TRAJENTA [Concomitant]
     Active Substance: LINAGLIPTIN
  9. CANDESASARTAN [Concomitant]
  10. BISOPROLOL [Suspect]
     Active Substance: BISOPROLOL
     Indication: BLOOD PRESSURE INCREASED
     Dosage: 5 MG ? X 2
     Route: 048
     Dates: start: 20180926, end: 20190614
  11. AMLODIPINE [Concomitant]
     Active Substance: AMLODIPINE BESYLATE
  12. FOLACIN [Concomitant]
  13. METFORMIN [Concomitant]
     Active Substance: METFORMIN HYDROCHLORIDE
  14. BETOLVIDON [Concomitant]
     Active Substance: CYANOCOBALAMIN
  15. CANODERM [Concomitant]
     Active Substance: UREA

REACTIONS (2)
  - Nodal rhythm [Recovered/Resolved]
  - Bradycardia [Recovered/Resolved]

NARRATIVE: CASE EVENT DATE: 20190614
